FAERS Safety Report 10191608 (Version 1)
Quarter: 2014Q2

REPORT INFORMATION
  Report Type: Spontaneous
  Country: IT (occurrence: IT)
  Receive Date: 20140523
  Receipt Date: 20140523
  Transmission Date: 20141212
  Serious: Yes (Hospitalization)
  Sender: FDA-Public Use
  Company Number: IT-ASTRAZENECA-2014SE33360

PATIENT
  Age: 16898 Day
  Sex: Female

DRUGS (1)
  1. BUDESONIDE [Suspect]
     Indication: ASTHMA
     Route: 055
     Dates: start: 20131018

REACTIONS (2)
  - Erythema of eyelid [Unknown]
  - Erythema [Unknown]
